FAERS Safety Report 23321560 (Version 1)
Quarter: 2023Q4

REPORT INFORMATION
  Report Type: Spontaneous
  Country: FR (occurrence: FR)
  Receive Date: 20231220
  Receipt Date: 20231220
  Transmission Date: 20240109
  Serious: Yes (Hospitalization)
  Sender: FDA-Public Use
  Company Number: None

PATIENT
  Age: 15 Year
  Sex: Female
  Weight: 53 kg

DRUGS (2)
  1. IBUPROFEN [Suspect]
     Active Substance: IBUPROFEN
     Indication: Intentional overdose
     Dosage: NP
     Route: 048
     Dates: start: 20230102, end: 20230102
  2. ACETAMINOPHEN [Suspect]
     Active Substance: ACETAMINOPHEN
     Indication: Intentional overdose
     Dosage: 16 DF
     Route: 048
     Dates: start: 20230102, end: 20230102

REACTIONS (5)
  - Metabolic acidosis [Recovered/Resolved]
  - Speech disorder [Recovered/Resolved]
  - Behaviour disorder [Recovered/Resolved]
  - Poisoning deliberate [Recovered/Resolved]
  - Vomiting [Recovered/Resolved]

NARRATIVE: CASE EVENT DATE: 20230102
